FAERS Safety Report 8927418 (Version 1)
Quarter: 2012Q4

REPORT INFORMATION
  Report Type: 
  Country: US (occurrence: US)
  Receive Date: 20121127
  Receipt Date: 20121127
  Transmission Date: 20130627
  Serious: No
  Sender: FDA-Public Use
  Company Number: US-PFIZER INC-2012296826

PATIENT
  Age: 61 Year
  Sex: Female
  Weight: 72.56 kg

DRUGS (8)
  1. NEURONTIN [Suspect]
     Indication: OSTEOARTHRITIS
     Dosage: 300 mg, 3x/day
     Dates: start: 201211, end: 201211
  2. NEURONTIN [Suspect]
     Indication: FIBROMYALGIA
  3. AMITRIPTYLINE [Concomitant]
     Indication: FIBROMYALGIA
     Dosage: 25 mg, Daily
  4. AMITRIPTYLINE [Concomitant]
     Indication: OSTEOARTHRITIS
  5. ZANAFLEX [Concomitant]
     Indication: OSTEOARTHRITIS
     Dosage: 2.5 mg, 3x/day
  6. ZANAFLEX [Concomitant]
     Indication: FIBROMYALGIA
  7. ULTRACET [Concomitant]
     Indication: OSTEOARTHRITIS
     Dosage: UNK
  8. ULTRACET [Concomitant]
     Indication: FIBROMYALGIA

REACTIONS (2)
  - Nausea [Recovered/Resolved]
  - Vomiting [Recovered/Resolved]
